FAERS Safety Report 19458185 (Version 1)
Quarter: 2021Q2

REPORT INFORMATION
  Report Type: Report from Study
  Country: CA (occurrence: CA)
  Receive Date: 20210624
  Receipt Date: 20210624
  Transmission Date: 20210717
  Serious: Yes (Other)
  Sender: FDA-Public Use
  Company Number: CA-JNJFOC-20210645014

PATIENT
  Age: 17 Year
  Sex: Female
  Weight: 65 kg

DRUGS (1)
  1. REMICADE [Suspect]
     Active Substance: INFLIXIMAB
     Indication: CROHN^S DISEASE
     Dosage: PATIENT RECEIVED (54TH) DOSE OF INFLIXIMAB, RECOMBINANT INJECTION ON 19?JUN?2021
     Route: 042
     Dates: start: 20150401

REACTIONS (4)
  - Wisdom teeth removal [Unknown]
  - Haematochezia [Unknown]
  - Drug ineffective [Unknown]
  - Abdominal pain [Unknown]

NARRATIVE: CASE EVENT DATE: 20210506
